FAERS Safety Report 5202777-4 (Version None)
Quarter: 2007Q1

REPORT INFORMATION
  Report Type: 
  Country: None (occurrence: None)
  Receive Date: 20070109
  Receipt Date: 20061227
  Transmission Date: 20070707
  Serious: Yes (Other)
  Sender: FDA-Public Use
  Company Number: US-SHR-US-2006-026166

PATIENT
  Age: 51 Year
  Sex: Female
  Weight: 86 kg

DRUGS (8)
  1. BETASERON [Suspect]
     Indication: RELAPSING-REMITTING MULTIPLE SCLEROSIS
     Dosage: 8 MIU, EVERY 2D
     Route: 058
     Dates: start: 20031106, end: 20060704
  2. BETASERON [Suspect]
     Dosage: 4 MIU, EVERY 2D
     Route: 058
     Dates: start: 20060907
  3. METFORMIN HCL [Concomitant]
     Dosage: 850 MG, 3X/DAY
  4. LISINOPRIL W/HYDROCHLOROTHIAZIDE [Concomitant]
     Dosage: 20 MG, 1X/DAY
  5. GLYBURIDE [Concomitant]
     Dosage: 5 MG, 2X/DAY
  6. FLUOXETINE [Concomitant]
     Dosage: 20 MG, 1X/DAY
  7. LOVASTATIN [Concomitant]
     Dosage: 40 MG, 1X/DAY
  8. ASPIRIN [Concomitant]
     Dosage: 31 MG, 1X/DAY

REACTIONS (1)
  - ARTHRITIS [None]
